FAERS Safety Report 16017466 (Version 6)
Quarter: 2019Q2

REPORT INFORMATION
  Report Type: Spontaneous
  Country: US (occurrence: US)
  Receive Date: 20190228
  Receipt Date: 20190612
  Transmission Date: 20190711
  Serious: Yes (Other)
  Sender: FDA-Public Use
  Company Number: PHEH2019US008187

PATIENT
  Age: 64 Year
  Sex: Male

DRUGS (3)
  1. AFINITOR [Suspect]
     Active Substance: EVEROLIMUS
     Indication: RENAL CANCER
     Dosage: UNK UNK, QD
     Route: 048
  2. LENVATINIB [Suspect]
     Active Substance: LENVATINIB
     Indication: RENAL CANCER
     Dosage: 18 MG, QD
     Route: 048
  3. LENVATINIB [Suspect]
     Active Substance: LENVATINIB
     Dosage: 14 MG, QD
     Route: 048

REACTIONS (10)
  - Stomatitis [Unknown]
  - Transient ischaemic attack [Unknown]
  - Balance disorder [Unknown]
  - Impatience [Unknown]
  - Fatigue [Recovering/Resolving]
  - Drug intolerance [Unknown]
  - Arthralgia [Not Recovered/Not Resolved]
  - Disorientation [Unknown]
  - Oral pain [Unknown]
  - Hypertension [Unknown]

NARRATIVE: CASE EVENT DATE: 20190219
